FAERS Safety Report 7654223-9 (Version None)
Quarter: 2011Q3

REPORT INFORMATION
  Report Type: 
  Country: None (occurrence: None)
  Receive Date: 20110803
  Receipt Date: 20110727
  Transmission Date: 20111222
  Serious: Yes (Other)
  Sender: FDA-Public Use
  Company Number: US-US-EMD SERONO, INC.-7073860

PATIENT
  Sex: Male

DRUGS (2)
  1. TYLENOL-500 [Concomitant]
     Indication: PREMEDICATION
  2. REBIF [Suspect]
     Indication: PRODUCT USED FOR UNKNOWN INDICATION
     Route: 058
     Dates: start: 20110411

REACTIONS (4)
  - OPTIC NEURITIS [None]
  - INJECTION SITE IRRITATION [None]
  - LIVER FUNCTION TEST ABNORMAL [None]
  - INJECTION SITE ERYTHEMA [None]
